FAERS Safety Report 9959089 (Version 1)
Quarter: 2014Q1

REPORT INFORMATION
  Report Type: Spontaneous
  Country: IT (occurrence: None)
  Receive Date: 20140228
  Receipt Date: 20140228
  Transmission Date: 20141002
  Serious: Yes (Other)
  Sender: FDA-Public Use
  Company Number: AUR-APL-2014-02140

PATIENT
  Age: 49 Year
  Sex: Female
  Weight: 60 kg

DRUGS (1)
  1. OLANZAPINE (OLANZAPINE) [Suspect]
     Indication: SCHIZOPHRENIA
     Dosage: (10 MG, 1 D), ORAL
     Route: 048
     Dates: start: 20130901, end: 20130910

REACTIONS (2)
  - Therapeutic product ineffective [None]
  - Product substitution issue [None]
